FAERS Safety Report 17047684 (Version 5)
Quarter: 2019Q4

REPORT INFORMATION
  Report Type: Spontaneous
  Country: UA (occurrence: UA)
  Receive Date: 20191119
  Receipt Date: 20191205
  Transmission Date: 20200122
  Serious: Yes (Death, Life-Threatening, Hospitalization, Other)
  Sender: FDA-Public Use
  Company Number: UA-B.I. PHARMACEUTICALS,INC./RIDGEFIELD-2019-BI-114592

PATIENT
  Age: 62 Year
  Sex: Female

DRUGS (2)
  1. MOVALIS [Suspect]
     Active Substance: MELOXICAM
     Indication: MUSCULOSKELETAL PAIN
     Route: 030
     Dates: start: 20190404, end: 20190406
  2. VITAMIN B12 [Concomitant]
     Active Substance: CYANOCOBALAMIN
     Indication: RADICULOPATHY
     Route: 065
     Dates: start: 20190404, end: 20190406

REACTIONS (2)
  - Acute myocardial infarction [Fatal]
  - Arteriosclerosis [Fatal]

NARRATIVE: CASE EVENT DATE: 20190407
